FAERS Safety Report 25240758 (Version 1)
Quarter: 2025Q2

REPORT INFORMATION
  Report Type: Spontaneous
  Country: US (occurrence: US)
  Receive Date: 20250425
  Receipt Date: 20250425
  Transmission Date: 20250716
  Serious: Yes (Other)
  Sender: GLAXOSMITHKLINE
  Company Number: US-GLAXOSMITHKLINE INC-US2025047877

PATIENT

DRUGS (1)
  1. BENLYSTA [Suspect]
     Active Substance: BELIMUMAB
     Indication: Lupus nephritis
     Dosage: 10 MG/KG, MO
     Route: 042
     Dates: start: 20241219

REACTIONS (2)
  - Lupus nephritis [Not Recovered/Not Resolved]
  - Condition aggravated [Not Recovered/Not Resolved]
